FAERS Safety Report 5159959-X (Version None)
Quarter: 2006Q4

REPORT INFORMATION
  Report Type: 
  Country: None (occurrence: None)
  Receive Date: 20061117
  Receipt Date: 20061003
  Transmission Date: 20070319
  Serious: Yes (Other)
  Sender: FDA-Public Use
  Company Number: US018789

PATIENT
  Age: 1 Day
  Sex: Male

DRUGS (1)
  1. ACTIQ [Suspect]
     Dosage: 5 LOZENGES DAILY; A FEW MONTHS

REACTIONS (6)
  - DRUG DEPENDENCE [None]
  - DRUG EXPOSURE DURING PREGNANCY [None]
  - DRUG WITHDRAWAL SYNDROME NEONATAL [None]
  - INSOMNIA [None]
  - IRRITABILITY [None]
  - NEONATAL DISORDER [None]
